FAERS Safety Report 20075829 (Version 1)
Quarter: 2021Q4

REPORT INFORMATION
  Report Type: Spontaneous
  Country: US (occurrence: US)
  Receive Date: 20211116
  Receipt Date: 20211116
  Transmission Date: 20220303
  Serious: No
  Sender: FDA-Public Use
  Company Number: US-ALLERGAN-2136505US

PATIENT
  Age: 86 Year
  Sex: Female

DRUGS (1)
  1. OXYTROL FOR WOMEN [Suspect]
     Active Substance: OXYBUTYNIN
     Indication: Bladder disorder
     Dosage: ONE PATCH EVERY 4 DAYS
     Route: 062
     Dates: start: 202107

REACTIONS (1)
  - Application site erythema [Recovered/Resolved]

NARRATIVE: CASE EVENT DATE: 20210101
